FAERS Safety Report 9527245 (Version 3)
Quarter: 2013Q4

REPORT INFORMATION
  Report Type: Report from Study
  Country: PE (occurrence: PE)
  Receive Date: 20130917
  Receipt Date: 20131205
  Transmission Date: 20140711
  Serious: Yes (Hospitalization, Disabling, Other)
  Sender: FDA-Public Use
  Company Number: PE-ROCHE-1276827

PATIENT
  Age: 45 Year
  Sex: Female

DRUGS (1)
  1. ACTEMRA [Suspect]
     Indication: RHEUMATOID ARTHRITIS
     Dosage: LATEST DOSE WAS RECEIVED ON 23/AUG/2013
     Route: 042
     Dates: start: 20130130

REACTIONS (5)
  - Corneal transplant [Unknown]
  - Glaucoma [Unknown]
  - Eye pain [Unknown]
  - Blindness unilateral [Not Recovered/Not Resolved]
  - Drug ineffective [Unknown]
